FAERS Safety Report 11747949 (Version 1)
Quarter: 2015Q4

REPORT INFORMATION
  Report Type: Spontaneous
  Country: NL (occurrence: NL)
  Receive Date: 20151117
  Receipt Date: 20151117
  Transmission Date: 20160304
  Serious: Yes (Hospitalization, Congenital Anomaly)
  Sender: FDA-Public Use
  Company Number: PHHY2015NL145595

PATIENT
  Sex: Male
  Weight: 2.68 kg

DRUGS (4)
  1. METHYLDOPA. [Concomitant]
     Active Substance: METHYLDOPA
     Indication: FOETAL EXPOSURE DURING PREGNANCY
     Dosage: 250 MG (3DF, QD)
     Route: 064
     Dates: start: 20151014
  2. CLOMIPRAMINE [Suspect]
     Active Substance: CLOMIPRAMINE
     Indication: FOETAL EXPOSURE DURING PREGNANCY
     Dosage: 75 MG (2DF, QD)
     Route: 064
     Dates: start: 2013
  3. QUETIAPINE [Suspect]
     Active Substance: QUETIAPINE
     Indication: FOETAL EXPOSURE DURING PREGNANCY
     Dosage: 50 MG (1DF, QD)
     Route: 064
  4. FOLIC ACID. [Concomitant]
     Active Substance: FOLIC ACID
     Indication: FOETAL EXPOSURE DURING PREGNANCY
     Route: 064

REACTIONS (3)
  - Electrocardiogram ST segment depression [Recovering/Resolving]
  - Cyanosis neonatal [Recovering/Resolving]
  - Hypertonia neonatal [Recovering/Resolving]

NARRATIVE: CASE EVENT DATE: 20151015
